FAERS Safety Report 20264468 (Version 2)
Quarter: 2022Q1

REPORT INFORMATION
  Report Type: Spontaneous
  Country: US (occurrence: US)
  Receive Date: 20211231
  Receipt Date: 20220125
  Transmission Date: 20220423
  Serious: Yes (Hospitalization)
  Sender: FDA-Public Use
  Company Number: US-GW PHARMA-202112USGW06407

PATIENT

DRUGS (4)
  1. EPIDIOLEX [Suspect]
     Active Substance: CANNABIDIOL
     Indication: Severe myoclonic epilepsy of infancy
     Dosage: 160 MILLIGRAM
     Route: 048
     Dates: start: 20211209, end: 202112
  2. EPIDIOLEX [Suspect]
     Active Substance: CANNABIDIOL
     Dosage: 320 MILLIGRAM
     Route: 048
     Dates: start: 202112
  3. KEPPRA [Concomitant]
     Active Substance: LEVETIRACETAM
     Indication: Product used for unknown indication
     Dosage: UNK
     Route: 065
  4. KETODAN [KETOCONAZOLE] [Concomitant]
     Indication: Product used for unknown indication
     Dosage: UNK (FORMULATION: KIT)
     Route: 065

REACTIONS (3)
  - Seizure cluster [Unknown]
  - Seizure [Unknown]
  - Product supply issue [Unknown]

NARRATIVE: CASE EVENT DATE: 20211201
